FAERS Safety Report 6912478-X (Version None)
Quarter: 2010Q3

REPORT INFORMATION
  Report Type: 
  Country: None (occurrence: None)
  Receive Date: 20100806
  Receipt Date: 20080617
  Transmission Date: 20110219
  Serious: No
  Sender: FDA-Public Use
  Company Number: US-PFIZER INC-2008036576

PATIENT
  Sex: Female
  Weight: 79.5 kg

DRUGS (10)
  1. DETROL LA [Suspect]
     Indication: HYPERTONIC BLADDER
     Route: 048
     Dates: start: 20080301
  2. ALBUTEROL [Concomitant]
  3. MONTELUKAST SODIUM [Concomitant]
  4. ALISKIREN [Concomitant]
  5. INDAPAMIDE [Concomitant]
     Indication: HYPERTENSION
  6. LEVOXYL [Concomitant]
     Indication: HYPOTHYROIDISM
  7. NEXIUM [Concomitant]
  8. LIPITOR [Concomitant]
  9. ZETIA [Concomitant]
  10. CYMBALTA [Concomitant]

REACTIONS (2)
  - DRY MOUTH [None]
  - URINE FLOW DECREASED [None]
